FAERS Safety Report 22063616 (Version 2)
Quarter: 2023Q1

REPORT INFORMATION
  Report Type: Spontaneous
  Country: US (occurrence: None)
  Receive Date: 20230306
  Receipt Date: 20230314
  Transmission Date: 20230418
  Serious: Yes (Hospitalization, Other)
  Sender: FDA-Public Use
  Company Number: US-ROCHE-3299586

PATIENT
  Sex: Female

DRUGS (3)
  1. XOLAIR [Suspect]
     Active Substance: OMALIZUMAB
     Indication: Idiopathic urticaria
     Route: 058
     Dates: start: 202302
  2. XOLAIR [Suspect]
     Active Substance: OMALIZUMAB
  3. XOLAIR [Suspect]
     Active Substance: OMALIZUMAB

REACTIONS (4)
  - Anaphylactic reaction [Unknown]
  - Urticaria [Unknown]
  - Anxiety [Unknown]
  - Off label use [Unknown]
